FAERS Safety Report 4617276-8 (Version None)
Quarter: 2005Q1

REPORT INFORMATION
  Report Type: 
  Country: None (occurrence: None)
  Receive Date: 20050323
  Receipt Date: 20041105
  Transmission Date: 20050727
  Serious: Yes (Disabling, Other)
  Sender: FDA-Public Use
  Company Number: US-MERCK-0411USA01070

PATIENT
  Age: 57 Year
  Sex: Male
  Weight: 78 kg

DRUGS (5)
  1. VIOXX [Suspect]
     Indication: COSTOCHONDRITIS
     Route: 048
     Dates: start: 19991201, end: 20000923
  2. LIPITOR [Concomitant]
     Route: 065
     Dates: start: 19980101
  3. AXID [Concomitant]
     Route: 065
  4. VITAMINS (UNSPECIFIED) [Concomitant]
     Route: 065
  5. VIAGRA [Concomitant]
     Route: 065

REACTIONS (3)
  - EMOTIONAL DISTRESS [None]
  - ERECTILE DYSFUNCTION [None]
  - TRANSIENT ISCHAEMIC ATTACK [None]
